FAERS Safety Report 5580013-7 (Version None)
Quarter: 2008Q1

REPORT INFORMATION
  Report Type: 
  Country: None (occurrence: None)
  Receive Date: 20080103
  Receipt Date: 20071114
  Transmission Date: 20080703
  Serious: No
  Sender: FDA-Public Use
  Company Number: US-BAYER-US-2007-041015

PATIENT
  Sex: Female

DRUGS (1)
  1. YAZ [Suspect]
     Indication: DRUG USE FOR UNKNOWN INDICATION
     Route: 048

REACTIONS (6)
  - ABDOMINAL DISTENSION [None]
  - BREAST PAIN [None]
  - BREAST SWELLING [None]
  - FLUID RETENTION [None]
  - HEADACHE [None]
  - WEIGHT INCREASED [None]
